FAERS Safety Report 7099221-1 (Version None)
Quarter: 2010Q4

REPORT INFORMATION
  Report Type: 
  Country: None (occurrence: None)
  Receive Date: 20101112
  Receipt Date: 20101102
  Transmission Date: 20110411
  Serious: Yes (Other)
  Sender: FDA-Public Use
  Company Number: GB-JNJFOC-20101101316

PATIENT
  Age: 50 Year
  Sex: Female

DRUGS (8)
  1. RISPERIDONE [Suspect]
     Indication: ANXIETY
     Dosage: 0.5MG X 3 IN MORNING AND 0.5MG X3 IN EVENING
     Route: 048
  2. RISPERIDONE [Suspect]
     Indication: HALLUCINATION, AUDITORY
     Dosage: 0.5MG X 3 IN MORNING AND 0.5MG X3 IN EVENING
     Route: 048
  3. AMITRIPTYLINE HCL [Concomitant]
     Indication: ILL-DEFINED DISORDER
     Route: 065
  4. CETIRIZINE HCL [Concomitant]
     Indication: ILL-DEFINED DISORDER
     Route: 065
  5. DIAZEPAM [Concomitant]
     Indication: ILL-DEFINED DISORDER
     Route: 065
  6. OMEPRAZOLE [Concomitant]
     Indication: ILL-DEFINED DISORDER
     Route: 065
  7. PROGYNOVA [Concomitant]
     Indication: ILL-DEFINED DISORDER
     Route: 065
  8. ZOPICLONE [Concomitant]
     Indication: ILL-DEFINED DISORDER
     Route: 065

REACTIONS (5)
  - ANXIETY [None]
  - DRUG INEFFECTIVE [None]
  - HALLUCINATION [None]
  - ILLUSION [None]
  - PRODUCT QUALITY ISSUE [None]
